FAERS Safety Report 16303519 (Version 1)
Quarter: 2019Q2

REPORT INFORMATION
  Report Type: Spontaneous
  Country: US (occurrence: US)
  Receive Date: 20190513
  Receipt Date: 20190513
  Transmission Date: 20190711
  Serious: Yes (Death)
  Sender: FDA-Public Use
  Company Number: US-RECKITT BENCKISER HEALTHCARE INT LIMITED-RB-85057-2019

PATIENT
  Age: 86 Year
  Sex: Female

DRUGS (1)
  1. MUCINEX MAXIMUM STRENGTH [Suspect]
     Active Substance: GUAIFENESIN
     Indication: COUGH
     Dosage: PATIENT TOOK HALF TABLET EVERY 12 HOURS FOR A TOTAL OF 3 DOSES (TOTAL 1.5 TABLETS)
     Route: 065
     Dates: start: 20190429

REACTIONS (3)
  - Wrong technique in product usage process [Fatal]
  - Condition aggravated [Fatal]
  - Underdose [Fatal]

NARRATIVE: CASE EVENT DATE: 201904
